FAERS Safety Report 6066016-7 (Version None)
Quarter: 2009Q1

REPORT INFORMATION
  Report Type: 
  Country: None (occurrence: None)
  Receive Date: 20090205
  Receipt Date: 20090128
  Transmission Date: 20090719
  Serious: Yes (Hospitalization, Other)
  Sender: FDA-Public Use
  Company Number: US-AMGEN-QUU330778

PATIENT
  Sex: Female

DRUGS (1)
  1. ENBREL [Suspect]
     Indication: PSORIASIS
     Route: 058

REACTIONS (7)
  - ABASIA [None]
  - ABDOMINAL PAIN UPPER [None]
  - DEPRESSION [None]
  - FALL [None]
  - HALLUCINATION [None]
  - INTESTINAL OBSTRUCTION [None]
  - PSORIASIS [None]
